FAERS Safety Report 24823009 (Version 4)
Quarter: 2025Q2

REPORT INFORMATION
  Report Type: Spontaneous
  Country: US (occurrence: US)
  Receive Date: 20250109
  Receipt Date: 20250517
  Transmission Date: 20250717
  Serious: Yes (Other)
  Sender: SANOFI AVENTIS
  Company Number: US-SA-2025SA006715

PATIENT
  Sex: Male
  Weight: 81.36 kg

DRUGS (7)
  1. DUPIXENT [Suspect]
     Active Substance: DUPILUMAB
     Indication: Acute graft versus host disease
     Dosage: 300 MG, QOW
     Route: 058
  2. DUPIXENT [Suspect]
     Active Substance: DUPILUMAB
     Indication: Dermatitis
  3. DUPIXENT [Suspect]
     Active Substance: DUPILUMAB
     Indication: Illness
  4. JAKAFI [Concomitant]
     Active Substance: RUXOLITINIB
  5. PREDNISONE [Concomitant]
     Active Substance: PREDNISONE
  6. VALACYCLOVIR [Concomitant]
     Active Substance: VALACYCLOVIR HYDROCHLORIDE
  7. POSACONAZOLE [Concomitant]
     Active Substance: POSACONAZOLE

REACTIONS (9)
  - Pneumonia [Unknown]
  - Steroid diabetes [Unknown]
  - Platelet count decreased [Unknown]
  - White blood cell count decreased [Unknown]
  - Blood disorder [Recovered/Resolved]
  - Condition aggravated [Recovered/Resolved]
  - COVID-19 [Unknown]
  - Product use in unapproved indication [Unknown]
  - Drug ineffective [Unknown]
